FAERS Safety Report 24346488 (Version 1)
Quarter: 2024Q3

REPORT INFORMATION
  Report Type: Spontaneous
  Country: US (occurrence: US)
  Receive Date: 20240921
  Receipt Date: 20240921
  Transmission Date: 20241016
  Serious: No
  Sender: ROCHE
  Company Number: US-ROCHE-10000084044

PATIENT
  Sex: Female
  Weight: 67.81 kg

DRUGS (10)
  1. XOLAIR [Suspect]
     Active Substance: OMALIZUMAB
     Indication: Chronic spontaneous urticaria
     Route: 058
     Dates: start: 20240821
  2. XOLAIR [Suspect]
     Active Substance: OMALIZUMAB
  3. MONTELUKAST [Concomitant]
     Active Substance: MONTELUKAST SODIUM
     Indication: Eosinophilic oesophagitis
  4. PROGESTERONE [Concomitant]
     Active Substance: PROGESTERONE
  5. HYDROXYZINE [Concomitant]
     Active Substance: HYDROXYZINE HYDROCHLORIDE
     Indication: Urticaria
     Dosage: ONE EVERY 8 HOURS AS NEEDED
  6. VALTREX [Concomitant]
     Active Substance: VALACYCLOVIR HYDROCHLORIDE
  7. METFORMIN [Concomitant]
     Active Substance: METFORMIN HYDROCHLORIDE
     Indication: Blood glucose fluctuation
  8. ZOLPIDEM [Concomitant]
     Active Substance: ZOLPIDEM TARTRATE
  9. LIOTHYRONINE [Concomitant]
     Active Substance: LIOTHYRONINE
     Indication: Hypothyroidism
  10. ALLEGRA [Concomitant]
     Active Substance: FEXOFENADINE HYDROCHLORIDE

REACTIONS (4)
  - Myalgia [Not Recovered/Not Resolved]
  - Arthralgia [Not Recovered/Not Resolved]
  - Pain [Not Recovered/Not Resolved]
  - Nausea [Not Recovered/Not Resolved]
